FAERS Safety Report 6017579-9 (Version None)
Quarter: 2008Q4

REPORT INFORMATION
  Report Type: 
  Country: None (occurrence: None)
  Receive Date: 20081223
  Receipt Date: 20081216
  Transmission Date: 20090506
  Serious: Yes (Other)
  Sender: FDA-Public Use
  Company Number: US-PFIZER INC-2008155601

PATIENT
  Sex: Female
  Weight: 56.245 kg

DRUGS (6)
  1. NORVASC [Suspect]
     Indication: CHEST PAIN
     Dosage: 2.5 MG, 1X/DAY
     Dates: end: 20081215
  2. NORVASC [Suspect]
     Indication: CARDIOVASCULAR EVENT PROPHYLAXIS
  3. ZETIA [Suspect]
     Indication: BLOOD CHOLESTEROL INCREASED
  4. ATENOLOL [Concomitant]
     Dosage: UNK
     Dates: start: 19970101
  5. LIPITOR [Concomitant]
     Dosage: UNK
  6. ALTACE [Concomitant]

REACTIONS (6)
  - CONDITION AGGRAVATED [None]
  - DEPRESSION [None]
  - LICHEN PLANUS [None]
  - MUSCULOSKELETAL STIFFNESS [None]
  - MYOCARDIAL INFARCTION [None]
  - RAYNAUD'S PHENOMENON [None]
